FAERS Safety Report 8134270-3 (Version None)
Quarter: 2012Q1

REPORT INFORMATION
  Report Type: 
  Country: None (occurrence: None)
  Receive Date: 20120208
  Receipt Date: 20120124
  Transmission Date: 20120608
  Serious: Yes (Other)
  Sender: FDA-Public Use
  Company Number: ZOLP20120002

PATIENT
  Age: 45 Year
  Sex: Male

DRUGS (5)
  1. ESCITALOPRAM [Suspect]
  2. PROPRANOLOL (PROPANOLOL) (PROPRANOLOL) [Concomitant]
  3. ZOLPIDEM TARTRATE [Suspect]
     Indication: SLEEP DISORDER
     Dosage: 10-25 MG DAILY FROM DAYS 13-35,
  4. MIRTAZAPINE [Concomitant]
  5. LORAZEPAM [Concomitant]

REACTIONS (10)
  - WITHDRAWAL SYNDROME [None]
  - REFUSAL OF TREATMENT BY PATIENT [None]
  - OVERDOSE [None]
  - DISORIENTATION [None]
  - DELIRIUM [None]
  - AGITATION [None]
  - BLOOD PRESSURE FLUCTUATION [None]
  - INITIAL INSOMNIA [None]
  - ABNORMAL BEHAVIOUR [None]
  - INCONTINENCE [None]
